FAERS Safety Report 16523366 (Version 1)
Quarter: 2019Q3

REPORT INFORMATION
  Report Type: Spontaneous
  Country: DK (occurrence: DK)
  Receive Date: 20190703
  Receipt Date: 20190703
  Transmission Date: 20191004
  Serious: Yes (Death, Hospitalization)
  Sender: FDA-Public Use
  Company Number: DK-ACCORD-136026

PATIENT
  Age: 79 Year
  Sex: Female

DRUGS (16)
  1. FEXOFENADINE/FEXOFENADINE HYDROCHLORIDE [Concomitant]
     Indication: PRURITUS
     Dosage: STYRKE: 180 MG.
     Route: 048
     Dates: start: 20190417
  2. FORMO EASYHALER [Concomitant]
     Indication: CHRONIC OBSTRUCTIVE PULMONARY DISEASE
     Dosage: STRENGTH: 12 MICROGRAMS / DOSE.
     Route: 055
     Dates: start: 20190508
  3. ACETYLSALICYLIC ACID [Concomitant]
     Active Substance: ASPIRIN
     Indication: THROMBOSIS PROPHYLAXIS
     Dosage: STYRKE: 75 MG.
     Route: 048
     Dates: start: 20190507
  4. TIOTROPIUM/TIOTROPIUM BROMIDE [Concomitant]
     Indication: CHRONIC OBSTRUCTIVE PULMONARY DISEASE
     Dosage: STYRKE: 2.5 MIKROGRAM
     Route: 055
     Dates: start: 20190312
  5. NAVELBINE [Suspect]
     Active Substance: VINORELBINE TARTRATE
     Indication: NON-SMALL CELL LUNG CANCER
     Dosage: STRENGTH: 80 MG
     Route: 048
     Dates: start: 20190514, end: 201905
  6. CARBOPLATIN. [Suspect]
     Active Substance: CARBOPLATIN
     Indication: NON-SMALL CELL LUNG CANCER
     Dosage: STYRKE: 10 MG/ML. CONCENTRATE AND SOLVENT FOR SOLUTION FOR INFUSION
     Route: 042
     Dates: start: 20190514
  7. METOCLOPRAMIDE. [Concomitant]
     Active Substance: METOCLOPRAMIDE
     Indication: NAUSEA
     Dosage: STYRKE: 10 MG.
     Route: 048
     Dates: start: 20190326
  8. LACTULOSE. [Concomitant]
     Active Substance: LACTULOSE
     Indication: CONSTIPATION
     Dosage: STYRKE: 660 MG/ML.
     Route: 048
     Dates: start: 20190508
  9. SIMVASTATIN. [Concomitant]
     Active Substance: SIMVASTATIN
     Indication: HYPERCHOLESTEROLAEMIA
     Dosage: STYRKE: 40 MG.
     Route: 048
     Dates: start: 20170705
  10. SODIUM PICOSULFATE [Concomitant]
     Active Substance: SODIUM PICOSULFATE
     Indication: PRODUCT USED FOR UNKNOWN INDICATION
     Dosage: DOSE: UNKNOWN, STRENGTH: UNKNOWN.
  11. PANTOPRAZOLE [Concomitant]
     Active Substance: PANTOPRAZOLE
     Indication: PROPHYLAXIS AGAINST GASTROINTESTINAL ULCER
     Dosage: DOSE: 1 HOUR BEFORE A MEAL. STRENGTH: 20 MG.
     Route: 048
     Dates: start: 20180712
  12. PROPRANOLOL [Concomitant]
     Active Substance: PROPRANOLOL HYDROCHLORIDE
     Indication: TREMOR
     Dosage: STYRKE: 40 MG.
     Route: 048
     Dates: start: 20170316
  13. ZOLPIDEM [Concomitant]
     Active Substance: ZOLPIDEM TARTRATE
     Indication: INSOMNIA
     Dosage: DOSE: 0.5-1 TABLET BEFORE BEDTIME. STRENGTH: 10 MG
     Route: 048
     Dates: start: 20190401
  14. SALBUTAMOL [Concomitant]
     Active Substance: ALBUTEROL
     Indication: BRONCHOSPASM
     Dosage: STYRKE: 200 MIKROGRAM/DOSIS
     Route: 055
     Dates: start: 20190311
  15. CITALOPRAM [Concomitant]
     Active Substance: CITALOPRAM HYDROBROMIDE
     Indication: DEPRESSION
     Dosage: STYRKE: 40 MG.
     Route: 048
     Dates: start: 20111118
  16. CLOPIDOGREL [Concomitant]
     Active Substance: CLOPIDOGREL BISULFATE
     Indication: THROMBOSIS PROPHYLAXIS
     Dosage: STYRKE: 75 MG.
     Route: 048
     Dates: start: 20170706

REACTIONS (1)
  - Febrile neutropenia [Fatal]

NARRATIVE: CASE EVENT DATE: 20190522
